FAERS Safety Report 7493010-1 (Version None)
Quarter: 2011Q2

REPORT INFORMATION
  Report Type: 
  Country: None (occurrence: None)
  Receive Date: 20110520
  Receipt Date: 20110512
  Transmission Date: 20111010
  Serious: No
  Sender: FDA-Public Use
  Company Number: US-PFIZER INC-2011097347

PATIENT
  Sex: Female

DRUGS (6)
  1. EFFEXOR XR [Suspect]
     Dosage: UNK
     Dates: start: 20110421
  2. VENLAFAXINE HCL [Suspect]
     Dosage: 75 MG DAILY
     Route: 048
     Dates: start: 20110101, end: 20110420
  3. OMEPRAZOLE [Suspect]
     Indication: DYSPEPSIA
     Dosage: UNK
  4. EFFEXOR XR [Suspect]
     Indication: OBSESSIVE-COMPULSIVE DISORDER
     Dosage: 75 MG DAILY
     Route: 048
     Dates: end: 20110101
  5. CLONAZEPAM [Suspect]
     Indication: DYSPEPSIA
     Dosage: UNK
  6. VENLAFAXINE HCL [Suspect]
     Indication: OBSESSIVE-COMPULSIVE DISORDER
     Dosage: 37.5 MG, UNK
     Dates: start: 20110101

REACTIONS (2)
  - OEDEMA PERIPHERAL [None]
  - INSOMNIA [None]
